FAERS Safety Report 24992002 (Version 1)
Quarter: 2025Q1

REPORT INFORMATION
  Report Type: Spontaneous
  Country: US (occurrence: US)
  Receive Date: 20250220
  Receipt Date: 20250220
  Transmission Date: 20250408
  Serious: Yes (Other)
  Sender: TEVA
  Company Number: US-TEVA-VS-3298059

PATIENT
  Age: 58 Year
  Sex: Male

DRUGS (9)
  1. PREDNISONE [Suspect]
     Active Substance: PREDNISONE
     Indication: Ocular myasthenia
     Route: 065
  2. PREDNISONE [Suspect]
     Active Substance: PREDNISONE
     Indication: Ocular myasthenia
     Route: 065
  3. ECULIZUMAB [Concomitant]
     Active Substance: ECULIZUMAB
     Indication: Prophylaxis
     Route: 042
  4. ECULIZUMAB [Concomitant]
     Active Substance: ECULIZUMAB
     Indication: Prophylaxis
     Route: 042
  5. PYRIDOSTIGMINE [Concomitant]
     Active Substance: PYRIDOSTIGMINE
     Indication: Ocular myasthenia
     Route: 065
  6. MYCOPHENOLATE MOFETIL [Suspect]
     Active Substance: MYCOPHENOLATE MOFETIL
     Indication: Ocular myasthenia
     Route: 065
  7. RITUXIMAB [Suspect]
     Active Substance: RITUXIMAB
     Indication: Ocular myasthenia
     Route: 042
  8. PEMBROLIZUMAB [Suspect]
     Active Substance: PEMBROLIZUMAB
     Indication: Neuroendocrine carcinoma of the skin
     Route: 042
  9. AZATHIOPRINE [Suspect]
     Active Substance: AZATHIOPRINE
     Indication: Ocular myasthenia
     Route: 065

REACTIONS (7)
  - Fatigue [Unknown]
  - Retinal vasculitis [Recovered/Resolved]
  - Irritability [Unknown]
  - Weight increased [Unknown]
  - Therapy non-responder [Unknown]
  - Rebound effect [Unknown]
  - Ocular myasthenia [Recovering/Resolving]
